FAERS Safety Report 16267163 (Version 3)
Quarter: 2019Q2

REPORT INFORMATION
  Report Type: Spontaneous
  Country: US (occurrence: US)
  Receive Date: 20190502
  Receipt Date: 20190603
  Transmission Date: 20190711
  Serious: Yes (Death, Other)
  Sender: FDA-Public Use
  Company Number: US-BEH-2019101709

PATIENT
  Age: 89 Year
  Sex: Female

DRUGS (6)
  1. ALBUMINAR [Suspect]
     Active Substance: ALBUMIN HUMAN
     Indication: PRODUCT USED FOR UNKNOWN INDICATION
     Dosage: 125 G (10 VIALS OF 12.5 G EACH)
     Route: 065
     Dates: start: 20190303, end: 20190306
  2. ALBUMINAR [Suspect]
     Active Substance: ALBUMIN HUMAN
     Dosage: 25G TOT, (2 VIALS OF 12.5G EACH)
     Route: 065
     Dates: start: 20190401, end: 20190401
  3. ALBUMINAR [Suspect]
     Active Substance: ALBUMIN HUMAN
     Dosage: 25G TOT, (2 VIALS OF 12.5G EACH)
     Route: 065
     Dates: start: 20190415, end: 20190415
  4. ALBUMINAR [Suspect]
     Active Substance: ALBUMIN HUMAN
     Dosage: 50 G, TOT (4 VIALS OF 12.5 G EACH)
     Route: 065
     Dates: start: 20190328, end: 20190328
  5. ALBUMINAR [Suspect]
     Active Substance: ALBUMIN HUMAN
     Dosage: 87.5 G, TOT (7 VIALS OF 12.5G EACH)
     Route: 065
     Dates: start: 20190327, end: 20190327
  6. ALBUMINAR [Suspect]
     Active Substance: ALBUMIN HUMAN
     Dosage: 50G, TOT (4 VIALS OF 12.5 G EACH)
     Route: 065
     Dates: start: 20190330, end: 20190330

REACTIONS (3)
  - Pyrexia [Fatal]
  - Septic shock [Fatal]
  - Serratia sepsis [Fatal]

NARRATIVE: CASE EVENT DATE: 201904
